FAERS Safety Report 8613574-1 (Version None)
Quarter: 2012Q3

REPORT INFORMATION
  Report Type: 
  Country: None (occurrence: None)
  Receive Date: 20120823
  Receipt Date: 20120808
  Transmission Date: 20120928
  Serious: Yes (Hospitalization)
  Sender: FDA-Public Use
  Company Number: JP-009507513-1208JPN000385

PATIENT

DRUGS (16)
  1. TELAVIC [Suspect]
     Indication: HEPATITIS C
     Dosage: 1500 MG, ONCE
     Route: 048
     Dates: start: 20120417, end: 20120424
  2. CALBLOCK [Concomitant]
     Indication: HYPERTENSION
     Dosage: 8 MG, QD
     Route: 048
  3. TELAVIC [Suspect]
     Dosage: 1250 MG, ONCE
     Route: 048
     Dates: start: 20120530
  4. TELAVIC [Suspect]
     Dosage: 1000 MG, ONCE
     Route: 048
     Dates: start: 20120618, end: 20120622
  5. TELAVIC [Suspect]
     Dosage: 750 MG, QD
     Route: 048
     Dates: start: 20120630, end: 20120723
  6. TELAVIC [Suspect]
     Dosage: 1500 MG, ONCE
     Route: 048
     Dates: start: 20120509, end: 20120529
  7. TELAVIC [Suspect]
     Dosage: 750 MG, QD
     Route: 048
     Dates: start: 20120604, end: 20120617
  8. PEG-INTRON [Suspect]
     Dosage: 1.0 MCG/KG/WEEK
     Route: 058
     Dates: start: 20120523
  9. PEG-INTRON [Suspect]
     Dosage: 0.9MCG/KG/WEEK
     Route: 058
     Dates: end: 20120708
  10. REBETOL [Suspect]
     Dosage: 400 MG, QD
     Route: 048
     Dates: start: 20120509, end: 20120622
  11. REBETOL [Suspect]
     Dosage: 400 MG, QD
     Route: 048
     Dates: start: 20120723
  12. PEG-INTRON [Suspect]
     Indication: HEPATITIS C
     Dosage: 1.0MCG/KG/WEEK
     Route: 058
     Dates: start: 20120417, end: 20120522
  13. PEG-INTRON [Suspect]
     Dosage: 1.0MCG/KG/WEEK
     Route: 058
     Dates: start: 20120709
  14. REBETOL [Suspect]
     Indication: HEPATITIS C
     Dosage: 600 MG, QD
     Route: 048
     Dates: start: 20120417, end: 20120508
  15. REBETOL [Suspect]
     Dosage: 200 MG, QD
     Route: 048
     Dates: start: 20120630, end: 20120722
  16. TELAVIC [Suspect]
     Dosage: 1250 MG, ONCE
     Route: 048
     Dates: start: 20120425, end: 20120508

REACTIONS (1)
  - HYPOKALAEMIA [None]
